FAERS Safety Report 20993568 (Version 1)
Quarter: 2022Q2

REPORT INFORMATION
  Report Type: Spontaneous
  Country: ES (occurrence: ES)
  Receive Date: 20220622
  Receipt Date: 20220622
  Transmission Date: 20220721
  Serious: Yes (Hospitalization, Other)
  Sender: FDA-Public Use
  Company Number: ES-SA-2021SA039983

PATIENT
  Age: 75 Year
  Sex: Male

DRUGS (4)
  1. DILTIAZEM HYDROCHLORIDE [Suspect]
     Active Substance: DILTIAZEM HYDROCHLORIDE
     Indication: Acute myocardial infarction
     Route: 048
     Dates: start: 20201001, end: 20201224
  2. ATORVASTATIN [Suspect]
     Active Substance: ATORVASTATIN
     Indication: Acute myocardial infarction
     Route: 048
     Dates: start: 20200901, end: 20201224
  3. OMEPRAZOLE [Concomitant]
     Active Substance: OMEPRAZOLE
     Indication: Prophylaxis
     Dates: start: 20200901, end: 20201223
  4. TICAGRELOR [Concomitant]
     Active Substance: TICAGRELOR
     Indication: Prophylaxis
     Dates: start: 20200901

REACTIONS (1)
  - Hepatitis cholestatic [Recovered/Resolved]
